FAERS Safety Report 8432835 (Version 3)
Quarter: 2015Q2

REPORT INFORMATION
  Report Type: Report from Study
  Country: US (occurrence: US)
  Receive Date: 20120229
  Receipt Date: 20150402
  Transmission Date: 20150821
  Serious: Yes (Hospitalization, Other)
  Sender: FDA-Public Use
  Company Number: US-SPECTRUM PHARMACEUTICALS, INC.-11-Z-US-00358

PATIENT

DRUGS (22)
  1. RITUXIMAB [Suspect]
     Active Substance: RITUXIMAB
     Dosage: 480 MG, SINGLE
     Route: 042
     Dates: start: 20110309, end: 20110309
  2. RITUXIMAB [Suspect]
     Active Substance: RITUXIMAB
     Dosage: UNK
     Route: 042
     Dates: start: 20101021, end: 20101021
  3. ZEVALIN [Suspect]
     Active Substance: IBRITUMOMAB TIUXETAN
     Indication: B-CELL LYMPHOMA
     Dosage: 32 MCI, SINGLE
     Route: 042
     Dates: start: 20110317, end: 20110317
  4. RITUXIMAB [Suspect]
     Active Substance: RITUXIMAB
     Dosage: UNK
     Route: 042
     Dates: start: 20101223, end: 20101223
  5. JANUVIA [Concomitant]
     Active Substance: SITAGLIPTIN PHOSPHATE
     Indication: TYPE 2 DIABETES MELLITUS
     Dosage: 100 MG, QD
     Route: 048
  6. RITUXIMAB [Suspect]
     Active Substance: RITUXIMAB
     Indication: B-CELL LYMPHOMA
     Dosage: 480 MG, SINGLE
     Route: 042
     Dates: start: 20110317, end: 20110317
  7. BENDAMUSTINE [Suspect]
     Active Substance: BENDAMUSTINE
     Dosage: 168 TO 175 MG, UNK
     Route: 042
     Dates: start: 20101021, end: 20101021
  8. COLACE [Concomitant]
     Active Substance: DOCUSATE SODIUM
     Indication: PRODUCT USED FOR UNKNOWN INDICATION
     Dosage: 100 MG, BID
     Route: 048
  9. NOVOLOG [Concomitant]
     Active Substance: INSULIN ASPART
     Indication: PRODUCT USED FOR UNKNOWN INDICATION
     Dosage: INJECT, TID (WITH MEALS).  SLIDING SCALE.
     Route: 058
  10. ZOLOFT [Concomitant]
     Active Substance: SERTRALINE HYDROCHLORIDE
     Indication: PRODUCT USED FOR UNKNOWN INDICATION
     Dosage: 50 MG, QD
     Route: 048
  11. RITUXIMAB [Suspect]
     Active Substance: RITUXIMAB
     Dosage: UNK
     Route: 042
     Dates: start: 20101123, end: 20101123
  12. GLUCOTROL [Concomitant]
     Active Substance: GLIPIZIDE
     Indication: PRODUCT USED FOR UNKNOWN INDICATION
     Dosage: 5 MG:  10 MG, BID (BEFORE MEALS)
     Route: 048
  13. VICODIN [Concomitant]
     Active Substance: ACETAMINOPHEN\HYDROCODONE BITARTRATE
     Indication: PRODUCT USED FOR UNKNOWN INDICATION
     Dosage: 5/500 MG:  1 TABLET, EVERY 4 HOURS, PRN
     Route: 048
  14. GLUCOPHAGE                         /00082701/ [Concomitant]
     Indication: PRODUCT USED FOR UNKNOWN INDICATION
     Dosage: 500 MG:  1000 MG, BID (WITH MEALS)
     Route: 048
  15. BENDAMUSTINE [Suspect]
     Active Substance: BENDAMUSTINE
     Dosage: 168 TO 175 MG, UNK
     Route: 042
     Dates: start: 20101223, end: 20101223
  16. MOBIC [Concomitant]
     Active Substance: MELOXICAM
     Indication: PRODUCT USED FOR UNKNOWN INDICATION
     Dosage: 7.5 MG; 15 MG, QD
     Route: 048
  17. METAGLIP [Concomitant]
     Active Substance: GLIPIZIDE\METFORMIN HYDROCHLORIDE
     Indication: PRODUCT USED FOR UNKNOWN INDICATION
     Dosage: 5/500 MG; 2 TABLETS, QAM
     Route: 048
  18. RITUXIMAB [Suspect]
     Active Substance: RITUXIMAB
     Dosage: UNK
     Route: 042
     Dates: start: 20110120, end: 20110120
  19. BENDAMUSTINE [Suspect]
     Active Substance: BENDAMUSTINE
     Indication: B-CELL LYMPHOMA
     Dosage: 168 TO 175 MG, UNK
     Route: 042
     Dates: start: 20110120, end: 20110120
  20. BENDAMUSTINE [Suspect]
     Active Substance: BENDAMUSTINE
     Dosage: 168 TO 175 MG, UNK
     Route: 042
     Dates: start: 20101123, end: 20101123
  21. ARICEPT                            /01318902/ [Concomitant]
     Indication: PRODUCT USED FOR UNKNOWN INDICATION
     Dosage: 5 MG, NIGHTLY
     Route: 048
  22. ZEVALIN [Suspect]
     Active Substance: IBRITUMOMAB TIUXETAN
     Dosage: 6.1 MCI, SINGLE
     Route: 042
     Dates: start: 20110309, end: 20110309

REACTIONS (19)
  - Thrombocytopenia [Unknown]
  - Skin infection [Unknown]
  - Post herpetic neuralgia [Not Recovered/Not Resolved]
  - Rash erythematous [Recovering/Resolving]
  - Chest pain [Not Recovered/Not Resolved]
  - Leukaemoid reaction [Not Recovered/Not Resolved]
  - Anaemia macrocytic [Not Recovered/Not Resolved]
  - Anaemia [Not Recovered/Not Resolved]
  - Glycosylated haemoglobin increased [Recovering/Resolving]
  - Chronic myeloid leukaemia [Recovered/Resolved]
  - Mental status changes [Recovered/Resolved]
  - Herpes zoster [Recovered/Resolved]
  - Platelet count decreased [Not Recovered/Not Resolved]
  - Blood lactate dehydrogenase increased [Not Recovered/Not Resolved]
  - Blood glucose increased [Recovering/Resolving]
  - Neutropenia [Recovered/Resolved]
  - Leukocytosis [Not Recovered/Not Resolved]
  - Superinfection viral [Recovered/Resolved]
  - Hypokalaemia [Recovered/Resolved]

NARRATIVE: CASE EVENT DATE: 201112
